FAERS Safety Report 10556469 (Version 2)
Quarter: 2015Q1

REPORT INFORMATION
  Report Type: Spontaneous
  Country: IT (occurrence: IT)
  Receive Date: 20141031
  Receipt Date: 20150213
  Transmission Date: 20150720
  Serious: Yes (Hospitalization)
  Sender: FDA-Public Use
  Company Number: IT-AUROBINDO-AUR-APL-2014-11264

PATIENT
  Age: 75 Year
  Sex: Female
  Weight: 85 kg

DRUGS (7)
  1. KANRENOL [Concomitant]
     Active Substance: CANRENOATE POTASSIUM
     Indication: HYPERTENSION
     Dosage: 1 DF, UNK
     Route: 065
  2. METFORAL [Concomitant]
     Active Substance: METFORMIN HYDROCHLORIDE
     Indication: TYPE 2 DIABETES MELLITUS
     Dosage: 3 DF, UNK
     Route: 065
  3. SERTRALINE [Suspect]
     Active Substance: SERTRALINE HYDROCHLORIDE
     Indication: DEPRESSION
     Dosage: 100 MG, DAILY
     Route: 065
     Dates: start: 20130601, end: 20140414
  4. COUMADIN [Concomitant]
     Active Substance: WARFARIN SODIUM
     Indication: ATRIAL FIBRILLATION
     Dosage: 5 MG, UNK
     Route: 065
  5. LASIX [Concomitant]
     Active Substance: FUROSEMIDE
     Indication: HYPERTENSION
     Dosage: 3 DF, UNK
     Route: 065
  6. SERENASE                           /00027401/ [Suspect]
     Active Substance: HALOPERIDOL
     Indication: COGNITIVE DISORDER
     Dosage: 1 DF, DAILY
     Route: 048
     Dates: start: 20140101, end: 20140414
  7. TRIATEC                            /00885601/ [Concomitant]
     Active Substance: RAMIPRIL
     Indication: HYPERTENSION
     Dosage: 1 DF, UNK
     Route: 065

REACTIONS (3)
  - Bradykinesia [Recovering/Resolving]
  - Bradyphrenia [Recovering/Resolving]
  - Extrapyramidal disorder [Recovering/Resolving]

NARRATIVE: CASE EVENT DATE: 20140414
